FAERS Safety Report 4509324-0 (Version None)
Quarter: 2004Q4

REPORT INFORMATION
  Report Type: 
  Country: None (occurrence: None)
  Receive Date: 20041123
  Receipt Date: 20041118
  Transmission Date: 20050328
  Serious: Yes (Disabling)
  Sender: FDA-Public Use
  Company Number: US-MERCK-0411USA03251

PATIENT
  Age: 75 Year
  Sex: Male

DRUGS (5)
  1. VIOXX [Suspect]
     Indication: ARTHRITIS
     Route: 048
     Dates: end: 20041011
  2. ASPIRIN [Concomitant]
     Route: 065
  3. LIPITOR [Concomitant]
     Route: 065
  4. FISH OIL (UNSPECIFIED) [Concomitant]
     Route: 065
  5. ASCORBIC ACID [Concomitant]
     Route: 065

REACTIONS (4)
  - BALANCE DISORDER [None]
  - DIFFICULTY IN WALKING [None]
  - HYPOXIA [None]
  - VERTIGO [None]
